FAERS Safety Report 4950152-X (Version None)
Quarter: 2006Q1

REPORT INFORMATION
  Report Type: 
  Country: None (occurrence: None)
  Receive Date: 20060315
  Receipt Date: 20060306
  Transmission Date: 20060701
  Serious: Yes (Hospitalization)
  Sender: FDA-Public Use
  Company Number: 200610137BYL

PATIENT
  Age: 24 Year
  Sex: Female
  Weight: 45 kg

DRUGS (2)
  1. AVELOX [Suspect]
     Indication: PNEUMONIA
     Dosage: 400 MG, QD, ORAL
     Route: 048
     Dates: start: 20060114, end: 20060120
  2. BROACT [Concomitant]

REACTIONS (4)
  - ERYTHEMA [None]
  - HYPERTHERMIA [None]
  - PYREXIA [None]
  - RASH [None]
